FAERS Safety Report 8903280 (Version 1)
Quarter: 2012Q4

REPORT INFORMATION
  Report Type: 
  Country: JP (occurrence: JP)
  Receive Date: 20121113
  Receipt Date: 20121113
  Transmission Date: 20130627
  Serious: Yes (Life-Threatening)
  Sender: FDA-Public Use
  Company Number: JP-PFIZER INC-2012280128

PATIENT
  Age: 6 None
  Sex: Male

DRUGS (1)
  1. VFEND [Suspect]
     Dosage: UNK
     Route: 042
     Dates: start: 20121108

REACTIONS (1)
  - Interstitial lung disease [Unknown]
